FAERS Safety Report 23922861 (Version 3)
Quarter: 2024Q4

REPORT INFORMATION
  Report Type: Report from Study
  Country: AU (occurrence: AU)
  Receive Date: 20240531
  Receipt Date: 20241203
  Transmission Date: 20250114
  Serious: Yes (Other)
  Sender: NOVARTIS
  Company Number: AU-002147023-NVSC2024AU114460

PATIENT
  Sex: Female

DRUGS (2)
  1. COSENTYX [Suspect]
     Active Substance: SECUKINUMAB
     Indication: Psoriatic arthropathy
     Dosage: UNK
     Route: 058
     Dates: start: 20240414
  2. COSENTYX [Suspect]
     Active Substance: SECUKINUMAB
     Dosage: UNK, QMO
     Route: 058
     Dates: start: 20240417

REACTIONS (9)
  - Lower respiratory tract infection [Unknown]
  - Cough [Unknown]
  - Pain in extremity [Unknown]
  - Nasopharyngitis [Unknown]
  - Headache [Unknown]
  - Malaise [Unknown]
  - Weight increased [Unknown]
  - Sinusitis [Unknown]
  - Infection [Unknown]
